FAERS Safety Report 13744017 (Version 3)
Quarter: 2017Q3

REPORT INFORMATION
  Report Type: Report from Study
  Country: US (occurrence: US)
  Receive Date: 20170712
  Receipt Date: 20170906
  Transmission Date: 20171127
  Serious: Yes (Hospitalization, Other)
  Sender: FDA-Public Use
  Company Number: US-ROCHE-1959821

PATIENT
  Age: 69 Year
  Sex: Male
  Weight: 89.89 kg

DRUGS (1)
  1. OCREVUS [Suspect]
     Active Substance: OCRELIZUMAB
     Indication: MULTIPLE SCLEROSIS
     Route: 065
     Dates: start: 20170627

REACTIONS (12)
  - Fall [Unknown]
  - Muscular weakness [Unknown]
  - Dizziness [Unknown]
  - Urinary tract infection [Recovered/Resolved]
  - Dysstasia [Unknown]
  - Pain in extremity [Unknown]
  - Ear haemorrhage [Unknown]
  - Sensory loss [Unknown]
  - Asthenia [Unknown]
  - Paraesthesia [Unknown]
  - Peripheral swelling [Unknown]
  - Confusional state [Unknown]

NARRATIVE: CASE EVENT DATE: 20170630
